FAERS Safety Report 8112271-9 (Version None)
Quarter: 2012Q1

REPORT INFORMATION
  Report Type: 
  Country: None (occurrence: None)
  Receive Date: 20120203
  Receipt Date: 20120203
  Transmission Date: 20120608
  Serious: Yes (Other)
  Sender: FDA-Public Use
  Company Number: None

PATIENT
  Age: 24 Month
  Sex: Female
  Weight: 83.461 kg

DRUGS (3)
  1. LOVASTATIN [Suspect]
     Indication: MUSCULOSKELETAL DISCOMFORT
  2. LOVASTATIN [Suspect]
     Indication: MUSCULAR WEAKNESS
  3. LOVASTATIN [Suspect]
     Indication: INFECTION

REACTIONS (6)
  - MUSCULAR WEAKNESS [None]
  - ASTHENIA [None]
  - FIBROMYALGIA [None]
  - RESPIRATORY TRACT INFECTION [None]
  - MYALGIA [None]
  - MUSCULOSKELETAL DISCOMFORT [None]
